FAERS Safety Report 11171264 (Version 1)
Quarter: 2015Q2

REPORT INFORMATION
  Report Type: Report from Study
  Country: VE (occurrence: VE)
  Receive Date: 20150608
  Receipt Date: 20150608
  Transmission Date: 20150821
  Serious: Yes (Other)
  Sender: FDA-Public Use
  Company Number: PHHY2015VE059036

PATIENT
  Age: 37 Year
  Sex: Male

DRUGS (5)
  1. ACLASTA [Suspect]
     Active Substance: ZOLEDRONIC ACID
     Indication: OSTEOPOROSIS
     Dosage: 5 MG, QD
     Route: 042
     Dates: start: 20121011, end: 20121011
  2. LECARDIP [Concomitant]
     Indication: HYPERTENSION
     Dosage: 20 MG, QD
     Route: 065
  3. PREDNISONA [Concomitant]
     Active Substance: PREDNISONE
     Indication: SYSTEMIC LUPUS ERYTHEMATOSUS
     Dosage: 10 MG, QD
     Route: 065
     Dates: start: 1999
  4. CALCIBON D [Concomitant]
     Indication: OSTEOPOROSIS
     Dosage: 1000 MG, QD
     Route: 065
     Dates: start: 2002
  5. APROVEL [Concomitant]
     Active Substance: IRBESARTAN
     Indication: HYPERTENSION
     Dosage: 300 MG, QD
     Route: 065
     Dates: start: 1999

REACTIONS (3)
  - Protein urine present [Recovered/Resolved]
  - Systemic lupus erythematosus [Recovered/Resolved]
  - Inflammation [Recovered/Resolved]

NARRATIVE: CASE EVENT DATE: 201303
